FAERS Safety Report 13717810 (Version 1)
Quarter: 2017Q3

REPORT INFORMATION
  Report Type: Spontaneous
  Country: US (occurrence: US)
  Receive Date: 20170705
  Receipt Date: 20170705
  Transmission Date: 20171127
  Serious: No
  Sender: FDA-Public Use
  Company Number: US-ALLERGAN-1707277US

PATIENT

DRUGS (1)
  1. DALVANCE [Suspect]
     Active Substance: DALBAVANCIN
     Indication: PRODUCT USED FOR UNKNOWN INDICATION
     Dosage: UNK
     Dates: start: 201702, end: 201702

REACTIONS (3)
  - Infusion site swelling [Unknown]
  - Infusion site extravasation [Unknown]
  - Feeling cold [Unknown]

NARRATIVE: CASE EVENT DATE: 201702
